FAERS Safety Report 19646528 (Version 1)
Quarter: 2021Q3

REPORT INFORMATION
  Report Type: Spontaneous
  Country: US (occurrence: US)
  Receive Date: 20210731
  Receipt Date: 20210731
  Transmission Date: 20211014
  Serious: No
  Sender: FDA-Public Use
  Company Number: None

PATIENT
  Sex: Male
  Weight: 71.22 kg

DRUGS (15)
  1. AZELASTINE. [Concomitant]
     Active Substance: AZELASTINE HYDROCHLORIDE
  2. LIVALO [Concomitant]
     Active Substance: PITAVASTATIN CALCIUM
  3. MIRALAX [Concomitant]
     Active Substance: POLYETHYLENE GLYCOL 3350
  4. NORVASC [Concomitant]
     Active Substance: AMLODIPINE BESYLATE
  5. COLACE [Concomitant]
     Active Substance: DOCUSATE SODIUM
  6. MULTIVITAMINS [Concomitant]
     Active Substance: VITAMINS
  7. ABIRATERONE ACETATE 250 MG [Suspect]
     Active Substance: ABIRATERONE ACETATE
     Indication: PROSTATE CANCER
     Route: 048
     Dates: start: 20210605
  8. PREDNISONE 5 MG [Suspect]
     Active Substance: PREDNISONE
     Indication: PROSTATE CANCER
     Route: 048
     Dates: start: 20210605
  9. GARLIC. [Concomitant]
     Active Substance: GARLIC
  10. GAUIFENESIN [Concomitant]
  11. HYDROCHLOROTHIAZIDE. [Concomitant]
     Active Substance: HYDROCHLOROTHIAZIDE
  12. COENZYME Q10 [Concomitant]
     Active Substance: DIETARY SUPPLEMENT\UBIDECARENONE
  13. GLUCOSAMINE [Concomitant]
     Active Substance: GLUCOSAMINE
  14. ASCORBIC ACID. [Concomitant]
     Active Substance: ASCORBIC ACID
  15. METOPROLOL. [Concomitant]
     Active Substance: METOPROLOL

REACTIONS (2)
  - Therapy interrupted [None]
  - Hepatic enzyme increased [None]
